FAERS Safety Report 7900650-1 (Version None)
Quarter: 2011Q4

REPORT INFORMATION
  Report Type: 
  Country: None (occurrence: None)
  Receive Date: 20111108
  Receipt Date: 20111027
  Transmission Date: 20120403
  Serious: No
  Sender: FDA-Public Use
  Company Number: US-PFIZER INC-2011262178

PATIENT
  Sex: Female

DRUGS (3)
  1. COLLAGENASE CLOSTRIDIUM HISTOLYTICUM [Suspect]
     Indication: DUPUYTREN'S CONTRACTURE
     Dosage: 0.58 MG, 1 IN 1 D
     Route: 026
     Dates: start: 20111019, end: 20111019
  2. LIDOCAINE HYDROCHLORIDE [Suspect]
     Dosage: UNK
     Dates: start: 20111020, end: 20111020
  3. LIDOCAINE HYDROCHLORIDE [Suspect]
     Indication: NERVE BLOCK
     Dosage: UNK
     Dates: start: 20111019, end: 20111019

REACTIONS (1)
  - LACERATION [None]
